FAERS Safety Report 22918281 (Version 4)
Quarter: 2023Q4

REPORT INFORMATION
  Report Type: Other
  Country: US (occurrence: US)
  Receive Date: 20230907
  Receipt Date: 20231118
  Transmission Date: 20240110
  Serious: No
  Sender: FDA-Public Use
  Company Number: US-TRAVERE-2023TVT00396

PATIENT
  Age: 71 Year
  Sex: Male

DRUGS (2)
  1. FILSPARI [Suspect]
     Active Substance: SPARSENTAN
     Indication: Chronic kidney disease
     Dosage: DOSE/FREQUENCY: 200MG TAKE 1 TABLET BY MOUTH 1 TIME A DAY FOR DAYS 1-14 THEN 2 TABLETS BY MOUTH 1 TI
     Route: 048
     Dates: start: 20230715
  2. FILSPARI [Suspect]
     Active Substance: SPARSENTAN
     Indication: Haematuria
     Dosage: 400 MG
     Route: 048
     Dates: start: 202307

REACTIONS (6)
  - Somnolence [Unknown]
  - Gait disturbance [Unknown]
  - Confusional state [Recovering/Resolving]
  - Product use in unapproved indication [Unknown]
  - Blood pressure fluctuation [Unknown]
  - Disorientation [Unknown]
